FAERS Safety Report 24753138 (Version 1)
Quarter: 2024Q4

REPORT INFORMATION
  Report Type: Spontaneous
  Country: US (occurrence: US)
  Receive Date: 20241219
  Receipt Date: 20241219
  Transmission Date: 20250114
  Serious: Yes (Other)
  Sender: RANBAXY
  Company Number: US-SUN PHARMACEUTICAL INDUSTRIES LTD-2024R1-485214

PATIENT
  Sex: Male

DRUGS (9)
  1. METHYLPREDNISOLONE [Suspect]
     Active Substance: METHYLPREDNISOLONE
     Indication: End stage renal disease
     Dosage: UNK
     Route: 065
  2. MYCOPHENOLIC ACID [Suspect]
     Active Substance: MYCOPHENOLIC ACID
     Indication: End stage renal disease
     Dosage: 1200 MILLIGRAM/SQ. METER
     Route: 065
  3. TACROLIMUS [Suspect]
     Active Substance: TACROLIMUS
     Indication: End stage renal disease
     Dosage: UNK
     Route: 065
  4. NICARDIPINE [Suspect]
     Active Substance: NICARDIPINE
     Indication: End stage renal disease
     Dosage: UNK
     Route: 041
  5. AMLODIPINE [Suspect]
     Active Substance: AMLODIPINE BESYLATE
     Indication: End stage renal disease
     Dosage: UNK
     Route: 065
  6. LABETALOL [Suspect]
     Active Substance: LABETALOL
     Indication: End stage renal disease
  7. CLONIDINE [Suspect]
     Active Substance: CLONIDINE
     Indication: End stage renal disease
     Dosage: UNK
     Route: 065
  8. LOSARTAN [Suspect]
     Active Substance: LOSARTAN
     Indication: End stage renal disease
     Dosage: UNK
     Route: 065
  9. THYMOGLOBULIN [Suspect]
     Active Substance: LAPINE T-LYMPHOCYTE IMMUNE GLOBULIN
     Indication: End stage renal disease
     Dosage: 3.7 MILLIGRAM/KILOGRAM
     Route: 065

REACTIONS (2)
  - Haematuria [Recovering/Resolving]
  - Blood creatinine increased [Recovering/Resolving]
